FAERS Safety Report 7272514-0 (Version None)
Quarter: 2011Q1

REPORT INFORMATION
  Report Type: 
  Country: None (occurrence: None)
  Receive Date: 20110203
  Receipt Date: 20110112
  Transmission Date: 20110831
  Serious: Yes (Hospitalization, Other)
  Sender: FDA-Public Use
  Company Number: US-BAYER-201041915NA

PATIENT
  Sex: Male

DRUGS (2)
  1. NEXAVAR [Suspect]
     Indication: THYROID CANCER
     Dosage: 400 MG, BID
     Route: 048
     Dates: start: 20101022
  2. NEXAVAR [Suspect]
     Dosage: 200 MG, BID
     Route: 048
     Dates: start: 20101106, end: 20101129

REACTIONS (16)
  - DEPRESSION [None]
  - ABDOMINAL PAIN UPPER [None]
  - HAEMOPTYSIS [None]
  - RASH [None]
  - MUSCULOSKELETAL PAIN [None]
  - BACK PAIN [None]
  - WEIGHT DECREASED [None]
  - DYSPNOEA [None]
  - MUSCULOSKELETAL CHEST PAIN [None]
  - FATIGUE [None]
  - COLLAPSE OF LUNG [None]
  - ARTHRALGIA [None]
  - TOOTH FRACTURE [None]
  - BLOOD PRESSURE INCREASED [None]
  - PRURITUS [None]
  - DECREASED APPETITE [None]
